FAERS Safety Report 5264790-0 (Version None)
Quarter: 2007Q1

REPORT INFORMATION
  Report Type: 
  Country: None (occurrence: None)
  Receive Date: 20061124
  Receipt Date: 20040519
  Transmission Date: 20070707
  Serious: Yes (Hospitalization)
  Sender: FDA-Public Use
  Company Number: 2004UW10468

PATIENT
  Age: 82 Year
  Sex: Male
  Weight: 80.5 kg

DRUGS (14)
  1. TENORMIN [Suspect]
     Dosage: 50 MG BID PO
     Route: 048
     Dates: end: 20040207
  2. ANGIOMAX [Suspect]
     Indication: ANTICOAGULANT THERAPY
     Dosage: 60 MG IV
     Route: 042
     Dates: start: 20040205, end: 20040205
  3. ANGIOMAX [Suspect]
     Indication: ANTICOAGULANT THERAPY
     Dosage: 76.5 MG IV
     Route: 042
     Dates: start: 20040205, end: 20040205
  4. DIGOXIN [Suspect]
     Dosage: 0.125 MG DAILY PO
     Route: 048
     Dates: end: 20040205
  5. CLONIDINE [Concomitant]
  6. FUROSEMIDE [Concomitant]
  7. ATENOLOL [Concomitant]
  8. DIGOXIN [Concomitant]
  9. GLYBURIDE [Concomitant]
  10. ASPIRIN [Concomitant]
  11. CLOPIDOGREL [Concomitant]
  12. NIFEDIPINE [Concomitant]
  13. TOPROL-XL [Concomitant]
  14. ENALAPRIL MALEATE [Concomitant]

REACTIONS (1)
  - BRADYCARDIA [None]
